FAERS Safety Report 25994172 (Version 2)
Quarter: 2025Q4

REPORT INFORMATION
  Report Type: Spontaneous
  Country: US (occurrence: US)
  Receive Date: 20251104
  Receipt Date: 20251204
  Transmission Date: 20260117
  Serious: No
  Sender: HETERO
  Company Number: US-HETERO-HET2025US06473

PATIENT
  Sex: Female
  Weight: 68.9 kg

DRUGS (1)
  1. PRUCALOPRIDE [Suspect]
     Active Substance: PRUCALOPRIDE
     Indication: Constipation
     Dosage: 2 MILLIGRAM, QD
     Route: 048
     Dates: start: 20250926

REACTIONS (1)
  - Drug ineffective [Unknown]
